FAERS Safety Report 8348245-2 (Version None)
Quarter: 2012Q2

REPORT INFORMATION
  Report Type: 
  Country: None (occurrence: None)
  Receive Date: 20120509
  Receipt Date: 20120430
  Transmission Date: 20120825
  Serious: Yes (Other)
  Sender: FDA-Public Use
  Company Number: CA-JNJFOC-20120501069

PATIENT
  Sex: Female
  Weight: 53 kg

DRUGS (3)
  1. REMICADE [Suspect]
     Indication: CROHN'S DISEASE
     Dates: start: 20071001
  2. PRILOSEC [Concomitant]
  3. IMURAN [Concomitant]

REACTIONS (1)
  - SQUAMOUS CELL CARCINOMA [None]
